FAERS Safety Report 5907888-3 (Version None)
Quarter: 2008Q4

REPORT INFORMATION
  Report Type: 
  Country: None (occurrence: None)
  Receive Date: 20081003
  Receipt Date: 20080929
  Transmission Date: 20090506
  Serious: Yes (Other)
  Sender: FDA-Public Use
  Company Number: BR-WYE-H05990008

PATIENT
  Sex: Male
  Weight: 75 kg

DRUGS (12)
  1. RAPAMUNE [Suspect]
     Indication: IMMUNOSUPPRESSANT DRUG THERAPY
     Route: 048
     Dates: start: 20080905, end: 20080917
  2. OMEPRAZOLE [Concomitant]
     Indication: PROPHYLAXIS AGAINST GASTROINTESTINAL ULCER
     Route: 048
     Dates: start: 20080911, end: 20080913
  3. OMEPRAZOLE [Concomitant]
     Route: 048
     Dates: start: 20080914
  4. SULFAMETHOXAZOLE + TRIMETHOPRIM [Concomitant]
     Indication: INFECTION PROPHYLAXIS
     Route: 048
     Dates: start: 20080904
  5. METHYLPREDNISOLONE [Concomitant]
     Indication: KIDNEY TRANSPLANT REJECTION
     Route: 042
     Dates: start: 20080910, end: 20080912
  6. PREDNISONE [Concomitant]
     Indication: IMMUNOSUPPRESSANT DRUG THERAPY
     Route: 048
     Dates: start: 20080904
  7. AMLODIPINE [Concomitant]
     Indication: HYPERTENSION
     Route: 048
     Dates: start: 20080908, end: 20080913
  8. AMLODIPINE [Concomitant]
     Route: 048
     Dates: start: 20080914
  9. DIPYRONE TAB [Concomitant]
     Indication: ANALGESIC THERAPY
     Route: 048
     Dates: start: 20080911, end: 20080911
  10. FUROSEMIDE [Concomitant]
     Indication: DIURETIC THERAPY
     Route: 048
     Dates: start: 20080904, end: 20080919
  11. TACROLIMUS [Concomitant]
     Indication: IMMUNOSUPPRESSANT DRUG THERAPY
     Route: 048
     Dates: start: 20080904, end: 20080916
  12. TACROLIMUS [Concomitant]
     Route: 048
     Dates: start: 20080917

REACTIONS (1)
  - URINARY FISTULA [None]
